FAERS Safety Report 16928905 (Version 4)
Quarter: 2020Q2

REPORT INFORMATION
  Report Type: Spontaneous
  Country: JP (occurrence: JP)
  Receive Date: 20191017
  Receipt Date: 20200527
  Transmission Date: 20200713
  Serious: Yes (Other)
  Sender: FDA-Public Use
  Company Number: JP-LEO PHARMA-325858

PATIENT
  Age: 76 Year
  Sex: Male

DRUGS (8)
  1. HARNALD [Concomitant]
     Indication: DYSURIA
  2. ARGAMATE [Concomitant]
     Active Substance: CALCIUM POLYSTYRENE SULFONATE
     Indication: HYPERKALAEMIA
     Dosage: 25GRAM X3/DAY
     Route: 048
     Dates: start: 20150624
  3. ARGAMATE [Concomitant]
     Active Substance: CALCIUM POLYSTYRENE SULFONATE
     Dosage: 25 GRAM X2/DAY
     Route: 048
     Dates: start: 20091217, end: 20150623
  4. LASIX [Concomitant]
     Active Substance: FUROSEMIDE
     Indication: HYPERTENSION
     Dosage: 10MG ONCE DAILY
     Route: 048
     Dates: start: 20101202
  5. MAGLAX [Concomitant]
     Active Substance: MAGNESIUM OXIDE
     Indication: CONSTIPATION
     Route: 048
  6. SENNOSIDE [Concomitant]
     Active Substance: SENNOSIDES
     Indication: CONSTIPATION
     Route: 048
  7. TOPILORIC [Concomitant]
     Active Substance: TOPIROXOSTAT
     Indication: HYPERURICAEMIA
     Dosage: 40MGX2/DAY
     Dates: start: 20140925
  8. DAIVOBET [Suspect]
     Active Substance: BETAMETHASONE DIPROPIONATE\CALCIPOTRIENE
     Indication: PSORIASIS
     Dosage: 180G/MONTH
     Route: 061
     Dates: start: 20141224, end: 20150729

REACTIONS (2)
  - Renal impairment [Recovered/Resolved]
  - Hypercalcaemia [Recovered/Resolved]

NARRATIVE: CASE EVENT DATE: 20150729
